FAERS Safety Report 6762250 (Version 3)
Quarter: 2015Q1

REPORT INFORMATION
  Report Type: Spontaneous
  Country: JP (occurrence: None)
  Receive Date: 20080904
  Receipt Date: 20150302
  Transmission Date: 20150721
  Serious: Yes (Hospitalization, Other)
  Sender: FDA-Public Use
  Company Number: 2008JP003684

PATIENT
  Age: 69 Year
  Sex: Female
  Weight: 71 kg

DRUGS (20)
  1. PROGRAF [Suspect]
     Active Substance: TACROLIMUS\TACROLIMUS ANHYDROUS
     Indication: LUPUS NEPHRITIS
     Dosage: 3 MG, /D, ORAL
     Route: 048
     Dates: start: 20071109, end: 20081105
  2. OLMETEC (OLMESARTAN) MEDOXOMIL) [Concomitant]
  3. LIPITOR [Concomitant]
     Active Substance: ATORVASTATIN CALCIUM
  4. ONEALFA (ALFACACLCIDOL) [Concomitant]
  5. ADALAT (NIFEDIPINE) [Concomitant]
  6. SLOW-K POTASSIUM CHLORIDE) [Concomitant]
  7. LASIX [Suspect]
     Active Substance: FUROSEMIDE
     Indication: PRODUCT USED FOR UNKNOWN INDICATION
     Dates: end: 2012
  8. AMLODIN (AMLODIPINE BESILATE) [Concomitant]
  9. MEDICON (DEXTROMETHORPHAN HYDROBROMIDE) [Concomitant]
     Active Substance: DEXTROMETHORPHAN HYDROBROMIDE
  10. PREDNISOLONE. [Suspect]
     Active Substance: PREDNISOLONE
     Indication: LUPUS NEPHRITIS
     Dosage: 10 MG, /D, ORAL; 7.5 MG, /D,  ORAL
     Route: 048
     Dates: start: 20071004, end: 20080603
  11. NOVORAPID (INSULIN ASPART (GENETICAL RECOMBINATION) [Concomitant]
  12. SEIBULE (MIGLITOL) [Concomitant]
  13. STARSIS [Concomitant]
     Active Substance: NATEGLINIDE
  14. SELBEX (TEPRENONE) [Concomitant]
     Active Substance: TEPRENONE
  15. ZYLORIC (ALLOPURINOL) [Concomitant]
     Active Substance: ALLOPURINOL
  16. GLUFAST (MITIGLINIDE CALCIUM HYDRATE) [Concomitant]
  17. FLUITRAN (TRICHLORMETHIAZIDE) [Concomitant]
  18. TENORMIN [Concomitant]
     Active Substance: ATENOLOL
  19. PERSANTIN (DIPYRIDAMOLE) [Concomitant]
  20. PL(NON-PYRINE COLD PREPARATION) [Concomitant]

REACTIONS (12)
  - Type 2 diabetes mellitus [None]
  - Hyperuricaemia [None]
  - Proteinuria [None]
  - Hypoalbuminaemia [None]
  - Hypokalaemia [None]
  - Headache [None]
  - Haemodialysis [None]
  - Peritonitis [None]
  - Nasopharyngitis [None]
  - Renal impairment [None]
  - Urinary casts [None]
  - Beta 2 microglobulin increased [None]

NARRATIVE: CASE EVENT DATE: 20071206
